FAERS Safety Report 9347311 (Version 3)
Quarter: 2014Q3

REPORT INFORMATION
  Report Type: Spontaneous
  Country: US (occurrence: US)
  Receive Date: 20130613
  Receipt Date: 20140923
  Transmission Date: 20150326
  Serious: Yes (Death, Hospitalization)
  Sender: FDA-Public Use
  Company Number: US-BAYER-2013-070909

PATIENT
  Age: 44 Year
  Sex: Female
  Weight: 54.88 kg

DRUGS (5)
  1. FLUCONAZOLE. [Concomitant]
     Active Substance: FLUCONAZOLE
  2. NYSTATIN W/TRIAMCINOLONE [NYSTATIN,TRIAMCINOLONE] [Concomitant]
     Dosage: UNK
     Dates: start: 20090311
  3. YAZ [Suspect]
     Active Substance: DROSPIRENONE\ETHINYL ESTRADIOL
     Indication: MENSTRUAL CYCLE MANAGEMENT
     Dosage: UNK
     Dates: start: 200801, end: 200906
  4. YAZ [Suspect]
     Active Substance: DROSPIRENONE\ETHINYL ESTRADIOL
     Indication: ACNE
  5. BETNESALIC [BETAMETHASONE VALERATE] [Concomitant]
     Dosage: UNK
     Dates: start: 20090320

REACTIONS (9)
  - Carotid artery occlusion [Fatal]
  - Brain oedema [Fatal]
  - Embolic stroke [Fatal]
  - Cerebral ischaemia [Fatal]
  - Injury [Fatal]
  - Pain [None]
  - Pain [Fatal]
  - Ischaemic cerebral infarction [Fatal]
  - Brain herniation [Fatal]

NARRATIVE: CASE EVENT DATE: 200906
